FAERS Safety Report 7197430-4 (Version None)
Quarter: 2010Q4

REPORT INFORMATION
  Report Type: 
  Country: None (occurrence: None)
  Receive Date: 20101209
  Receipt Date: 20090803
  Transmission Date: 20110411
  Serious: Yes (Hospitalization, Other)
  Sender: FDA-Public Use
  Company Number: 2009SP017675

PATIENT
  Age: 25 Year
  Sex: Female
  Weight: 58.9676 kg

DRUGS (13)
  1. NUVARING [Suspect]
     Indication: ENDOMETRIOSIS
     Dosage: 1 DF; QM; VAG
     Route: 067
     Dates: start: 20070513, end: 20070701
  2. NUVARING [Suspect]
     Indication: HORMONE LEVEL ABNORMAL
     Dosage: 1 DF; QM; VAG
     Route: 067
     Dates: start: 20070513, end: 20070701
  3. MIRENA [Suspect]
     Indication: ENDOMETRIOSIS
     Dates: start: 20060101, end: 20090101
  4. SINGULAIR [Concomitant]
  5. ALBUTEROL [Concomitant]
  6. MAXALT [Concomitant]
  7. AMERGE [Concomitant]
  8. IBUPROFEN [Concomitant]
  9. LEXAPRO [Concomitant]
  10. NEURONTIN [Concomitant]
  11. NIFEDIPINE [Concomitant]
  12. METHOTREXATE [Concomitant]
  13. ZONEGRAN [Concomitant]

REACTIONS (19)
  - ANTIPHOSPHOLIPID ANTIBODIES [None]
  - ASTHMA [None]
  - ATELECTASIS [None]
  - CHONDROMALACIA [None]
  - CONDITION AGGRAVATED [None]
  - CONSTIPATION [None]
  - IRON DEFICIENCY ANAEMIA [None]
  - LABORATORY TEST ABNORMAL [None]
  - MENISCUS LESION [None]
  - MIGRAINE [None]
  - PAIN [None]
  - PLEURAL EFFUSION [None]
  - POSTPARTUM DEPRESSION [None]
  - PREMATURE LABOUR [None]
  - PULMONARY EMBOLISM [None]
  - RECTAL HAEMORRHAGE [None]
  - ROAD TRAFFIC ACCIDENT [None]
  - SELF-INJURIOUS IDEATION [None]
  - VIRAL UPPER RESPIRATORY TRACT INFECTION [None]
